FAERS Safety Report 9050503 (Version 2)
Quarter: 2013Q1

REPORT INFORMATION
  Report Type: Spontaneous
  Country: GB (occurrence: GB)
  Receive Date: 20130205
  Receipt Date: 20130305
  Transmission Date: 20140127
  Serious: Yes (Other)
  Sender: FDA-Public Use
  Company Number: GB-ABBOTT-12P-167-0939545-00

PATIENT
  Sex: Female
  Weight: 63.5 kg

DRUGS (8)
  1. HUMIRA 40 MG/ 0.8 ML PRE-FILLED SYRINGE [Suspect]
     Indication: CROHN^S DISEASE
     Route: 058
     Dates: start: 201102, end: 201205
  2. HYDROCORTISONE [Concomitant]
     Indication: ADRENAL INSUFFICIENCY
     Dosage: AM
     Route: 048
  3. HYDROCORTISONE [Concomitant]
     Dosage: PM
     Route: 048
  4. MERCAPTOPURINE [Concomitant]
     Indication: CROHN^S DISEASE
     Route: 048
  5. ADCAL D3 [Concomitant]
     Indication: PRODUCT USED FOR UNKNOWN INDICATION
     Dosage: BD
     Route: 048
  6. AMITRIPTYLINE [Concomitant]
     Indication: INSOMNIA
     Dosage: NOCTE
     Route: 048
     Dates: start: 201111
  7. AMITRIPTYLINE [Concomitant]
     Indication: PAIN
  8. ALENDRONATE [Concomitant]
     Indication: OSTEOPOROSIS
     Dosage: WEEKLY
     Route: 048
     Dates: start: 2010

REACTIONS (2)
  - Skin exfoliation [Recovering/Resolving]
  - Skin exfoliation [Not Recovered/Not Resolved]
